FAERS Safety Report 13917794 (Version 1)
Quarter: 2017Q3

REPORT INFORMATION
  Report Type: Spontaneous
  Country: CA (occurrence: CA)
  Receive Date: 20170829
  Receipt Date: 20170829
  Transmission Date: 20171127
  Serious: Yes (Other)
  Sender: FDA-Public Use
  Company Number: CA-TEVA-800379USA

PATIENT
  Age: 64 Year
  Sex: Female

DRUGS (3)
  1. RISEDRONIC ACID [Suspect]
     Active Substance: RISEDRONIC ACID
     Route: 065
  2. PREDNISONE. [Suspect]
     Active Substance: PREDNISONE
     Indication: TEMPORAL ARTERITIS
     Dosage: HIGH DOSE
     Route: 065
  3. LEFLUNOMIDE. [Concomitant]
     Active Substance: LEFLUNOMIDE
     Route: 065

REACTIONS (1)
  - Osteonecrosis of jaw [Unknown]
